FAERS Safety Report 4613591-2 (Version None)
Quarter: 2005Q1

REPORT INFORMATION
  Report Type: 
  Country: None (occurrence: None)
  Receive Date: 20050321
  Receipt Date: 20040223
  Transmission Date: 20050727
  Serious: Yes (Other)
  Sender: FDA-Public Use
  Company Number: FR-JNJFOC-20040300074

PATIENT
  Sex: Female

DRUGS (3)
  1. PROPULSID [Suspect]
     Route: 049
     Dates: start: 20040123, end: 20040202
  2. OGAST [Concomitant]
     Route: 065
  3. LEVOTHYROX [Concomitant]
     Indication: HYPOTHYROIDISM
     Route: 065

REACTIONS (5)
  - CONFUSIONAL STATE [None]
  - DIARRHOEA [None]
  - HEADACHE [None]
  - POLLAKIURIA [None]
  - VERTIGO [None]
